FAERS Safety Report 14620202 (Version 2)
Quarter: 2019Q1

REPORT INFORMATION
  Report Type: Spontaneous
  Country: US (occurrence: US)
  Receive Date: 20180309
  Receipt Date: 20190123
  Transmission Date: 20190417
  Serious: Yes (Other)
  Sender: FDA-Public Use
  Company Number: PHEH2018US008619

PATIENT
  Sex: Female

DRUGS (6)
  1. TRESIBA [Concomitant]
     Active Substance: INSULIN DEGLUDEC
     Indication: PRODUCT USED FOR UNKNOWN INDICATION
     Dosage: UNK
     Route: 065
  2. METFORMIN [Concomitant]
     Active Substance: METFORMIN HYDROCHLORIDE
     Indication: PRODUCT USED FOR UNKNOWN INDICATION
     Dosage: UNK
     Route: 065
  3. GLIMEPIRIDE. [Concomitant]
     Active Substance: GLIMEPIRIDE
     Indication: PRODUCT USED FOR UNKNOWN INDICATION
     Dosage: UNK
     Route: 065
  4. RECLAST [Suspect]
     Active Substance: ZOLEDRONIC ACID
     Indication: OSTEOPOROSIS
     Dosage: UNK
     Route: 065
  5. METOPROLOL. [Concomitant]
     Active Substance: METOPROLOL
     Indication: BLOOD PRESSURE MEASUREMENT
     Dosage: UNK
     Route: 065
  6. LOSARTAN. [Concomitant]
     Active Substance: LOSARTAN
     Indication: PRODUCT USED FOR UNKNOWN INDICATION
     Dosage: UNK
     Route: 065

REACTIONS (20)
  - Migraine [Unknown]
  - Tooth loss [Unknown]
  - Pruritus [Unknown]
  - Osteomyelitis [Unknown]
  - Vasculitis [Unknown]
  - Bone disorder [Unknown]
  - Jaw disorder [Unknown]
  - Pain [Unknown]
  - Myalgia [Unknown]
  - Pain in extremity [Unknown]
  - Cyst [Unknown]
  - Purpura [Unknown]
  - Bone pain [Unknown]
  - Inflammation [Unknown]
  - Malaise [Unknown]
  - Arthralgia [Unknown]
  - Asthenia [Unknown]
  - Lymph node pain [Unknown]
  - Heart rate abnormal [Unknown]
  - Joint swelling [Unknown]
